FAERS Safety Report 6896786-7 (Version None)
Quarter: 2010Q3

REPORT INFORMATION
  Report Type: 
  Country: None (occurrence: None)
  Receive Date: 20100802
  Receipt Date: 20070221
  Transmission Date: 20110219
  Serious: No
  Sender: FDA-Public Use
  Company Number: US-PFIZER INC-2006121939

PATIENT
  Sex: Female
  Weight: 62.6 kg

DRUGS (5)
  1. LYRICA [Suspect]
     Indication: FIBROMYALGIA
     Route: 048
  2. VYTORIN [Concomitant]
     Route: 048
  3. SYNTHROID [Concomitant]
     Route: 048
  4. HYDROCHLOROTHIAZIDE [Concomitant]
     Route: 048
  5. ATENOLOL [Concomitant]
     Route: 048

REACTIONS (3)
  - BREAKTHROUGH PAIN [None]
  - DRUG INEFFECTIVE [None]
  - PAIN [None]
